FAERS Safety Report 7590095-9 (Version None)
Quarter: 2011Q3

REPORT INFORMATION
  Report Type: 
  Country: None (occurrence: None)
  Receive Date: 20110705
  Receipt Date: 20110624
  Transmission Date: 20111222
  Serious: Yes (Death, Hospitalization)
  Sender: FDA-Public Use
  Company Number: B0728052A

PATIENT
  Age: 86 Year
  Sex: Female

DRUGS (1)
  1. CLOBETASOL PROPIONATE [Suspect]
     Dosage: 40G PER DAY
     Route: 061

REACTIONS (4)
  - PURPURA [None]
  - GANGRENE [None]
  - NECROTISING FASCIITIS [None]
  - SKIN BACTERIAL INFECTION [None]
